FAERS Safety Report 13820289 (Version 2)
Quarter: 2017Q4

REPORT INFORMATION
  Report Type: Spontaneous
  Country: GB (occurrence: GB)
  Receive Date: 20170801
  Receipt Date: 20171024
  Transmission Date: 20180320
  Serious: Yes (Death, Life-Threatening, Hospitalization, Other)
  Sender: FDA-Public Use
  Company Number: GB-STRIDES ARCOLAB LIMITED-2017SP011280

PATIENT

DRUGS (1)
  1. VANCOMYCIN [Suspect]
     Active Substance: VANCOMYCIN
     Indication: PRODUCT USED FOR UNKNOWN INDICATION
     Dosage: UNK
     Route: 065

REACTIONS (12)
  - Toxic epidermal necrolysis [Fatal]
  - Genital discomfort [Recovered/Resolved]
  - Acute kidney injury [Fatal]
  - Rash [Recovered/Resolved]
  - Erythema [Recovered/Resolved]
  - Confusional state [Unknown]
  - Nikolsky^s sign [Recovered/Resolved]
  - Pain of skin [Recovered/Resolved]
  - Ocular discomfort [Unknown]
  - Tachycardia [Unknown]
  - Skin exfoliation [Recovered/Resolved]
  - Hypotension [Unknown]
